FAERS Safety Report 25301828 (Version 3)
Quarter: 2025Q3

REPORT INFORMATION
  Report Type: Spontaneous
  Country: EU (occurrence: EU)
  Receive Date: 20250512
  Receipt Date: 20250806
  Transmission Date: 20251020
  Serious: Yes (Hospitalization)
  Sender: SANOFI AVENTIS
  Company Number: EU-SA-2025SA038316

PATIENT
  Age: 52 Year
  Sex: Female

DRUGS (3)
  1. DUPILUMAB [Suspect]
     Active Substance: DUPILUMAB
     Indication: Chronic obstructive pulmonary disease
     Route: 058
     Dates: start: 20241126, end: 20241126
  2. DUPILUMAB [Suspect]
     Active Substance: DUPILUMAB
     Route: 058
     Dates: start: 20250204, end: 2025
  3. PREDNISOLONE [Concomitant]
     Active Substance: PREDNISOLONE
     Dosage: 25 MG, QD
     Route: 048
     Dates: start: 20250224

REACTIONS (16)
  - Gait inability [Unknown]
  - Peripheral swelling [Unknown]
  - Viral rash [Unknown]
  - Pain in extremity [Unknown]
  - Headache [Unknown]
  - Rash macular [Recovering/Resolving]
  - Joint swelling [Recovering/Resolving]
  - Vomiting [Recovering/Resolving]
  - Pyrexia [Recovering/Resolving]
  - Vasculitis [Recovering/Resolving]
  - Fatigue [Unknown]
  - Swelling [Unknown]
  - Body temperature increased [Unknown]
  - Pain [Unknown]
  - Pulmonary mass [Unknown]
  - Erythema [Recovering/Resolving]

NARRATIVE: CASE EVENT DATE: 20241201
